FAERS Safety Report 23529434 (Version 2)
Quarter: 2024Q1

REPORT INFORMATION
  Report Type: Other
  Country: RO (occurrence: None)
  Receive Date: 20240216
  Receipt Date: 20240223
  Transmission Date: 20240410
  Serious: Yes (Death)
  Sender: FDA-Public Use
  Company Number: RO-ROCHE-3509320

PATIENT
  Age: 69 Year
  Sex: Female
  Weight: 63 kg

DRUGS (6)
  1. HERCEPTIN [Suspect]
     Active Substance: TRASTUZUMAB
     Indication: HER2 positive breast cancer
     Dosage: MOST RECENT DOSE 22/NOV/2018
     Route: 042
     Dates: start: 20181101
  2. INDAPAMIDE [Concomitant]
     Active Substance: INDAPAMIDE
     Dosage: ONGOING = CHECKED
  3. NEBIVOLOL [Concomitant]
     Active Substance: NEBIVOLOL
     Dosage: ONGOING = CHECKED
  4. PERINDOPRIL [Concomitant]
     Active Substance: PERINDOPRIL
     Dosage: ONGOING = CHECKED
  5. SIMVASTATIN [Concomitant]
     Active Substance: SIMVASTATIN
     Dosage: ONGOING = CHECKED
  6. TRIMETAZIDINE [Concomitant]
     Active Substance: TRIMETAZIDINE
     Dosage: ONGOING = CHECKED

REACTIONS (1)
  - Death [Fatal]

NARRATIVE: CASE EVENT DATE: 20181213
